FAERS Safety Report 4280609-9 (Version None)
Quarter: 2004Q1

REPORT INFORMATION
  Report Type: 
  Country: None (occurrence: None)
  Receive Date: 20040127
  Receipt Date: 20040114
  Transmission Date: 20041129
  Serious: Yes (Hospitalization, Other)
  Sender: FDA-Public Use
  Company Number: 2004002749

PATIENT
  Age: 76 Year
  Sex: Female
  Weight: 78.4723 kg

DRUGS (9)
  1. LIPITOR [Suspect]
     Indication: BLOOD CHOLESTEROL
     Dosage: 20 MG (DAILY), ORAL
     Route: 048
  2. TICLOPIDINE HCL [Suspect]
     Indication: ILL-DEFINED DISORDER
  3. VENLAFAXINE HCL [Suspect]
     Indication: ILL-DEFINED DISORDER
  4. FOSINOPRIL SODIUM [Concomitant]
  5. FOLIC ACID [Concomitant]
  6. BETAXOLOL HYDROCHLORIDE (BETAXOLOL HYDROCHLORIDE) [Concomitant]
  7. DIPIVEFRINE HYDROCHLORIDE (DIPIVEFRINE HYDROCHLORIDE) [Concomitant]
  8. ACETYLSALICYLIC ACID SRT [Concomitant]
  9. OXYCODONE HCL [Concomitant]

REACTIONS (5)
  - BLOOD CHOLESTEROL INCREASED [None]
  - HEPATIC STEATOSIS [None]
  - HIGH DENSITY LIPOPROTEIN DECREASED [None]
  - LUNG NEOPLASM MALIGNANT [None]
  - STEVENS-JOHNSON SYNDROME [None]
